FAERS Safety Report 7295778-6 (Version None)
Quarter: 2011Q1

REPORT INFORMATION
  Report Type: 
  Country: None (occurrence: None)
  Receive Date: 20110207
  Receipt Date: 20110124
  Transmission Date: 20110831
  Serious: Yes (Death, Life-Threatening, Hospitalization)
  Sender: FDA-Public Use
  Company Number: TAJPN-11-0075

PATIENT
  Age: 75 Year
  Sex: Female
  Weight: 51 kg

DRUGS (15)
  1. COBALOKONIN (LOXOPROFEN SODIUM) [Concomitant]
  2. DIAINAMIX (THIAMINE DISULFIDE) [Concomitant]
  3. ASCORBIC ACID [Concomitant]
  4. TAKEPRON (LANSOPRAZOLE) [Concomitant]
  5. MS-TWICELON [Concomitant]
  6. ABRAXANE [Suspect]
     Indication: BREAST CANCER
     Dosage: (300 MG)
     Dates: start: 20101222, end: 20101222
  7. GASTER (FAMOTIDINE) [Concomitant]
  8. MORPHINE SULFATE INJ [Concomitant]
  9. PROHEPARIUM (PROHEPAR) [Concomitant]
  10. MAGMITT [Concomitant]
  11. KYTRIL (GRNAISETRON) [Concomitant]
  12. KENALOG [Concomitant]
  13. NAUZELIN (DOMPERIDONE) [Concomitant]
  14. DUROTEP (FENTANYL) [Concomitant]
  15. GASPORT (FAMOTIDINE) [Concomitant]

REACTIONS (29)
  - URINE OUTPUT DECREASED [None]
  - PLATELET COUNT DECREASED [None]
  - DIARRHOEA [None]
  - BLOOD CREATININE INCREASED [None]
  - DECREASED APPETITE [None]
  - STOMATITIS [None]
  - ALOPECIA [None]
  - HYPERKALAEMIA [None]
  - BREAST CANCER METASTATIC [None]
  - VOMITING [None]
  - WHEEZING [None]
  - BLOOD ALBUMIN DECREASED [None]
  - DEHYDRATION [None]
  - NAUSEA [None]
  - BLOOD SODIUM DECREASED [None]
  - ATELECTASIS [None]
  - CARDIO-RESPIRATORY ARREST [None]
  - WHITE BLOOD CELL COUNT DECREASED [None]
  - BLOOD UREA INCREASED [None]
  - CHOKING [None]
  - PERIPHERAL COLDNESS [None]
  - THERAPEUTIC RESPONSE DECREASED [None]
  - MALIGNANT PLEURAL EFFUSION [None]
  - DISSEMINATED INTRAVASCULAR COAGULATION [None]
  - NEOPLASM MALIGNANT [None]
  - DYSPNOEA [None]
  - DEPRESSED LEVEL OF CONSCIOUSNESS [None]
  - RESPIRATORY FAILURE [None]
  - OEDEMA PERIPHERAL [None]
